FAERS Safety Report 9064266 (Version 1)
Quarter: 2013Q1

REPORT INFORMATION
  Report Type: Spontaneous
  Country: US (occurrence: US)
  Receive Date: 20130128
  Receipt Date: 20130128
  Transmission Date: 20140127
  Serious: Yes (Other)
  Sender: FDA-Public Use
  Company Number: US-JNJFOC-20130105401

PATIENT
  Sex: Male
  Weight: 58.97 kg

DRUGS (6)
  1. SPORANOX [Suspect]
     Indication: ASPERGILLUS INFECTION
     Dosage: RESTARTED AGAIN ABOUT 2 YEARS AGO
     Route: 065
  2. SPORANOX [Suspect]
     Indication: ASPERGILLUS INFECTION
     Dosage: ABOUT 15 YEARS AGO
     Route: 065
  3. SPORANOX [Suspect]
     Indication: ASPERGILLUS INFECTION
     Dosage: ABOUT 2 WEEKS AGO
     Route: 065
     Dates: start: 201212
  4. INSULIN PORK [Suspect]
     Indication: TYPE 1 DIABETES MELLITUS
     Route: 065
     Dates: start: 201212
  5. HUMULIN REGULAR [Concomitant]
     Indication: TYPE 1 DIABETES MELLITUS
     Route: 065
  6. LANTUS [Concomitant]
     Indication: TYPE 1 DIABETES MELLITUS
     Route: 065

REACTIONS (6)
  - Haemoptysis [Not Recovered/Not Resolved]
  - Local swelling [Not Recovered/Not Resolved]
  - Myalgia [Not Recovered/Not Resolved]
  - Arthralgia [Not Recovered/Not Resolved]
  - Oedema [Not Recovered/Not Resolved]
  - Drug effect decreased [None]
